FAERS Safety Report 14666794 (Version 2)
Quarter: 2018Q2

REPORT INFORMATION
  Report Type: Spontaneous
  Country: HU (occurrence: HU)
  Receive Date: 20180322
  Receipt Date: 20180410
  Transmission Date: 20180711
  Serious: Yes (Death, Hospitalization, Other)
  Sender: FDA-Public Use
  Company Number: HU-B.I. PHARMACEUTICALS,INC./RIDGEFIELD-2018-BI-015873

PATIENT
  Age: 74 Year
  Sex: Female
  Weight: 85 kg

DRUGS (8)
  1. COVEREX AS COMB. [Concomitant]
     Indication: HYPERTENSION
     Dosage: STRENGTH: 5/1.25 MG
     Route: 065
  2. MILURIT [Concomitant]
     Active Substance: ALLOPURINOL
     Indication: HYPERURICAEMIA
     Route: 065
  3. FUROSEMID [Concomitant]
     Active Substance: FUROSEMIDE
     Indication: CARDIAC FAILURE
     Route: 065
     Dates: start: 2001
  4. MEFORAL [Concomitant]
     Active Substance: METFORMIN HYDROCHLORIDE
     Indication: TYPE 2 DIABETES MELLITUS
     Route: 065
     Dates: start: 2015, end: 201503
  5. CONCOR [Concomitant]
     Active Substance: BISOPROLOL FUMARATE
     Indication: HYPERTENSION
     Route: 065
     Dates: start: 2001
  6. FRONTIN [Concomitant]
     Active Substance: ALPRAZOLAM
     Indication: ANXIETY
     Route: 065
     Dates: start: 2008
  7. PRADAXA [Suspect]
     Active Substance: DABIGATRAN ETEXILATE MESYLATE
     Indication: ATRIAL FIBRILLATION
     Route: 048
     Dates: start: 201706
  8. COVERCARD [Concomitant]
     Active Substance: AMLODIPINE BESYLATE\PERINDOPRIL ARGININE
     Indication: HYPERTENSION
     Dosage: STRENGTH: 5/5 MG
     Route: 065
     Dates: start: 2001

REACTIONS (3)
  - Shock haemorrhagic [Fatal]
  - Duodenal ulcer haemorrhage [Fatal]
  - Melaena [Unknown]

NARRATIVE: CASE EVENT DATE: 20180319
